FAERS Safety Report 8046154-X (Version None)
Quarter: 2012Q1

REPORT INFORMATION
  Report Type: 
  Country: None (occurrence: None)
  Receive Date: 20120113
  Receipt Date: 20120111
  Transmission Date: 20120608
  Serious: Yes (Other)
  Sender: FDA-Public Use
  Company Number: US-CELGENEUS-163-21880-11110922

PATIENT
  Sex: Male

DRUGS (10)
  1. TRIAMTERENE AND HYDROCHLOROTHIAZIDE [Concomitant]
     Route: 065
  2. VOLTAREN [Concomitant]
     Route: 065
  3. REVLIMID [Suspect]
     Indication: MULTIPLE MYELOMA
     Dosage: 25 MILLIGRAM
     Route: 048
     Dates: start: 20100301
  4. ASPIRIN [Concomitant]
     Route: 065
  5. BENAZEPRIL HYDROCHLORIDE [Concomitant]
     Route: 065
  6. CALCIUM [Concomitant]
     Route: 065
  7. MULTI-VITAMIN [Concomitant]
     Route: 065
  8. REVLIMID [Suspect]
     Dosage: 15 MILLIGRAM
     Route: 048
     Dates: start: 20110601
  9. LYRICA [Concomitant]
     Route: 065
  10. VITAMIN B-12 [Concomitant]
     Route: 065

REACTIONS (1)
  - HERNIA [None]
